FAERS Safety Report 9172290 (Version 2)
Quarter: 2013Q2

REPORT INFORMATION
  Report Type: Spontaneous
  Country: US (occurrence: US)
  Receive Date: 20130319
  Receipt Date: 20130604
  Transmission Date: 20140414
  Serious: Yes (Other)
  Sender: FDA-Public Use
  Company Number: US-TEVA-392125USA

PATIENT
  Age: 22 Year
  Sex: Male

DRUGS (7)
  1. PROAIR HFA [Suspect]
     Indication: ASTHMA
     Dosage: AS NEEDED
     Route: 055
  2. ADVAIR [Concomitant]
     Indication: ASTHMA
     Route: 055
  3. SERTRALINE [Concomitant]
     Indication: POST-TRAUMATIC STRESS DISORDER
     Dosage: 100 MILLIGRAM DAILY;
     Route: 048
  4. PRAZOSIN [Concomitant]
     Indication: POST-TRAUMATIC STRESS DISORDER
     Dosage: 5 MILLIGRAM DAILY;
     Route: 048
  5. PRAZOSIN [Concomitant]
     Indication: HYPERTENSION
  6. LORAZEPAM [Concomitant]
     Indication: ANXIETY
     Dosage: 1 TO 2 MG AS NEEDED
     Route: 048
  7. ACYCLOVIR [Concomitant]
     Indication: HERPES VIRUS INFECTION
     Dosage: 800 MILLIGRAM DAILY;
     Route: 048

REACTIONS (4)
  - Head injury [Not Recovered/Not Resolved]
  - Mental disorder [Not Recovered/Not Resolved]
  - Amnesia [Not Recovered/Not Resolved]
  - Upper respiratory tract infection [Unknown]
